FAERS Safety Report 14057057 (Version 1)
Quarter: 2017Q4

REPORT INFORMATION
  Report Type: Report from Study
  Country: None (occurrence: US)
  Receive Date: 20171006
  Receipt Date: 20171006
  Transmission Date: 20180321
  Serious: Yes (Hospitalization)
  Sender: FDA-Public Use
  Company Number: US-ABBVIE-17P-163-2099330-00

PATIENT
  Age: 71 Year
  Sex: Female
  Weight: 66 kg

DRUGS (37)
  1. LIPITOR [Concomitant]
     Active Substance: ATORVASTATIN CALCIUM
     Indication: HYPERLIPIDAEMIA
     Route: 048
     Dates: start: 20170616
  2. LORAZEPAM. [Concomitant]
     Active Substance: LORAZEPAM
     Indication: VOMITING
  3. ONDANSETRON [Concomitant]
     Active Substance: ONDANSETRON
     Indication: PRODUCT USED FOR UNKNOWN INDICATION
     Route: 042
     Dates: start: 20170910, end: 20170910
  4. LASIX [Concomitant]
     Active Substance: FUROSEMIDE
     Route: 042
     Dates: start: 20170915, end: 20170920
  5. LASIX [Concomitant]
     Active Substance: FUROSEMIDE
     Route: 048
     Dates: start: 20170929
  6. MS CONTIN [Concomitant]
     Active Substance: MORPHINE SULFATE
     Indication: PRODUCT USED FOR UNKNOWN INDICATION
     Route: 048
     Dates: start: 20170927
  7. CRESEMBA [Concomitant]
     Active Substance: ISAVUCONAZONIUM SULFATE
     Indication: PROPHYLAXIS
     Route: 048
     Dates: start: 20170914, end: 20170916
  8. VENETOCLAX. [Suspect]
     Active Substance: VENETOCLAX
     Indication: NEOPLASM
     Route: 048
     Dates: start: 20170905, end: 20170906
  9. LEVAQUIN [Concomitant]
     Active Substance: LEVOFLOXACIN
     Indication: PROPHYLAXIS
     Route: 048
     Dates: start: 20170830
  10. HYDROCODONE/ACETAMINOPHEN [Concomitant]
     Active Substance: ACETAMINOPHEN\HYDROCODONE
     Indication: ABDOMINAL PAIN
     Dosage: 1-2 TABLETS Q 4 HOURS PRN
     Route: 048
     Dates: start: 20170905
  11. PANTOPRAZOLE [Concomitant]
     Active Substance: PANTOPRAZOLE
     Indication: PRODUCT USED FOR UNKNOWN INDICATION
     Route: 048
     Dates: start: 20170901
  12. POTASSIUM CHLORIDE. [Concomitant]
     Active Substance: POTASSIUM CHLORIDE
     Indication: HYPOKALAEMIA
     Dates: start: 20170920
  13. ABBV-075 [Suspect]
     Active Substance: MIVEBRESIB
     Route: 048
     Dates: start: 20170919, end: 20170923
  14. ALLOPURINOL. [Concomitant]
     Active Substance: ALLOPURINOL
     Indication: TUMOUR LYSIS SYNDROME
     Route: 048
     Dates: start: 20160822
  15. MULTIVITAMIN WITH MINERALS [Concomitant]
     Active Substance: MINERALS\VITAMINS
     Indication: SUPPLEMENTATION THERAPY
     Route: 048
     Dates: start: 20170802
  16. LASIX [Concomitant]
     Active Substance: FUROSEMIDE
     Indication: DYSPNOEA
     Route: 042
     Dates: start: 20170913, end: 20170913
  17. HYDROMORPHONE [Concomitant]
     Active Substance: HYDROMORPHONE
     Indication: PAIN
     Dosage: 2-4 MG
     Route: 048
     Dates: start: 20170923, end: 20170923
  18. LACTULOSE. [Concomitant]
     Active Substance: LACTULOSE
     Indication: PRODUCT USED FOR UNKNOWN INDICATION
     Route: 048
     Dates: start: 20170929, end: 20170929
  19. ALLOPURINOL. [Concomitant]
     Active Substance: ALLOPURINOL
     Indication: PROPHYLAXIS
  20. BENADRYL [Concomitant]
     Active Substance: DIPHENHYDRAMINE HYDROCHLORIDE
     Indication: PREMEDICATION
     Route: 048
     Dates: start: 20170905, end: 20170905
  21. CRESEMBA [Concomitant]
     Active Substance: ISAVUCONAZONIUM SULFATE
     Indication: PROPHYLAXIS
     Route: 042
     Dates: start: 20170923, end: 20170925
  22. ABBV-075 [Suspect]
     Active Substance: MIVEBRESIB
     Indication: NEOPLASM
     Route: 048
     Dates: start: 20170905, end: 20170905
  23. ACYCLOVIR. [Concomitant]
     Active Substance: ACYCLOVIR
     Indication: PROPHYLAXIS
     Route: 048
     Dates: start: 20170616
  24. LOPRESSOR [Concomitant]
     Active Substance: METOPROLOL TARTRATE
     Indication: HYPERTENSION
     Dates: start: 20161214
  25. VORICONAZOLE. [Concomitant]
     Active Substance: VORICONAZOLE
     Indication: PROPHYLAXIS
     Route: 048
     Dates: start: 20170901
  26. LORAZEPAM. [Concomitant]
     Active Substance: LORAZEPAM
     Indication: NAUSEA
     Dosage: 0.5-1MG Q4 HOURS PRN
     Route: 048
     Dates: start: 20170905
  27. TYLENOL [Concomitant]
     Active Substance: ACETAMINOPHEN
     Indication: PREMEDICATION
     Route: 048
     Dates: start: 20170905, end: 20170905
  28. TYLENOL [Concomitant]
     Active Substance: ACETAMINOPHEN
     Indication: PYREXIA
     Dosage: Q 4 HR PRN
     Route: 048
     Dates: start: 20170911
  29. LASIX [Concomitant]
     Active Substance: FUROSEMIDE
     Route: 042
     Dates: start: 20170914, end: 20170914
  30. OXYCODONE [Concomitant]
     Active Substance: OXYCODONE
     Indication: PAIN
     Dosage: 10-20 MG
     Route: 048
     Dates: start: 20170923, end: 20170927
  31. ZOFRAN [Concomitant]
     Active Substance: ONDANSETRON HYDROCHLORIDE
     Indication: NAUSEA
     Route: 048
     Dates: start: 20170923
  32. ZOFRAN [Concomitant]
     Active Substance: ONDANSETRON HYDROCHLORIDE
     Indication: VOMITING
     Route: 042
     Dates: start: 20170923
  33. MIRALAX [Concomitant]
     Active Substance: POLYETHYLENE GLYCOL 3350
     Indication: PRODUCT USED FOR UNKNOWN INDICATION
     Route: 048
     Dates: start: 20170929
  34. ABBV-075 [Suspect]
     Active Substance: MIVEBRESIB
     Route: 048
     Dates: start: 20170929
  35. HYDROMORPHONE [Concomitant]
     Active Substance: HYDROMORPHONE
     Route: 042
     Dates: start: 20170923, end: 20170925
  36. VENETOCLAX. [Suspect]
     Active Substance: VENETOCLAX
     Route: 048
     Dates: start: 20170919, end: 20170922
  37. HYDROXYUREA. [Concomitant]
     Active Substance: HYDROXYUREA
     Indication: ACUTE MYELOID LEUKAEMIA
     Route: 048
     Dates: start: 20170822

REACTIONS (3)
  - Lung infection [Recovered/Resolved]
  - Rash maculo-papular [Recovered/Resolved]
  - Clostridium difficile infection [Recovered/Resolved]

NARRATIVE: CASE EVENT DATE: 20170905
